FAERS Safety Report 6944815-4 (Version None)
Quarter: 2010Q3

REPORT INFORMATION
  Report Type: 
  Country: None (occurrence: None)
  Receive Date: 20100827
  Receipt Date: 20100816
  Transmission Date: 20110219
  Serious: Yes (Hospitalization)
  Sender: FDA-Public Use
  Company Number: US-MYLANLABS-2010S1013281

PATIENT
  Age: 56 Year
  Sex: Male
  Weight: 95.71 kg

DRUGS (8)
  1. FENTANYL CITRATE [Suspect]
     Indication: PAIN
     Dosage: Q72H
     Route: 062
     Dates: start: 20090521, end: 20100123
  2. FENTANYL CITRATE [Suspect]
     Indication: BACK PAIN
     Dosage: Q72H
     Route: 062
     Dates: start: 20090521, end: 20100123
  3. COREG [Concomitant]
  4. PLAVIX [Concomitant]
  5. DILTIAZEM [Concomitant]
     Dates: start: 20100126
  6. LORTAB [Concomitant]
  7. FOSINOPRIL SODIUM [Concomitant]
     Dates: start: 20100113
  8. NAPROXEN [Concomitant]
     Dates: start: 20100113

REACTIONS (16)
  - ARTHRALGIA [None]
  - CHEST PAIN [None]
  - CONFUSIONAL STATE [None]
  - DECREASED APPETITE [None]
  - DRUG WITHDRAWAL SYNDROME [None]
  - DYSGEUSIA [None]
  - DYSPHAGIA [None]
  - DYSPNOEA [None]
  - HYPERSENSITIVITY [None]
  - HYPOAESTHESIA [None]
  - NERVOUSNESS [None]
  - PALPITATIONS [None]
  - PARAESTHESIA [None]
  - RESTLESSNESS [None]
  - SWELLING [None]
  - WEIGHT DECREASED [None]
